FAERS Safety Report 4334112-8 (Version None)
Quarter: 2004Q2

REPORT INFORMATION
  Report Type: 
  Country: None (occurrence: None)
  Receive Date: 20040405
  Receipt Date: 20040325
  Transmission Date: 20050107
  Serious: Yes (Death)
  Sender: FDA-Public Use
  Company Number: 2004-03-1868

PATIENT
  Sex: 0

DRUGS (1)
  1. INTRON A [Suspect]
     Indication: MALIGNANT MELANOMA
     Dosage: TIW SUBCUTANEOUS
     Route: 058

REACTIONS (2)
  - BLOOD GLUCOSE ABNORMAL [None]
  - ROAD TRAFFIC ACCIDENT [None]
